FAERS Safety Report 9542464 (Version 1)
Quarter: 2013Q2

REPORT INFORMATION
  Report Type: Spontaneous
  Country: US (occurrence: None)
  Receive Date: 20130524
  Receipt Date: 20130524
  Transmission Date: 20140414
  Serious: No
  Sender: FDA-Public Use
  Company Number: PHEH2012US025538

PATIENT
  Age: 41 Year
  Sex: Female

DRUGS (6)
  1. GILENYA (FINGOLIMOD) CAPSULE, 0.5MG [Suspect]
     Indication: MULTIPLE SCLEROSIS
     Route: 048
     Dates: start: 20120214
  2. NEURONTIN (GABAPENTIN) [Concomitant]
  3. METOPROLOL (METOPROLOL) [Concomitant]
  4. TRAZODONE (TRAZODONE) [Concomitant]
  5. PROZAC (FLUOXETINE HYDROCHLORIDE) [Concomitant]
  6. FIORINAL (ACETYLSALICYLIC ACID, BUTALBITAL, CAFFEINE) [Concomitant]

REACTIONS (2)
  - Eye disorder [None]
  - Liver disorder [None]
